FAERS Safety Report 6065011-1 (Version None)
Quarter: 2009Q1

REPORT INFORMATION
  Report Type: 
  Country: None (occurrence: None)
  Receive Date: 20090204
  Receipt Date: 20090128
  Transmission Date: 20090719
  Serious: Yes (Hospitalization)
  Sender: FDA-Public Use
  Company Number: US-GILEAD-2009-0020031

PATIENT
  Sex: Male
  Weight: 66.284 kg

DRUGS (1)
  1. LETAIRIS [Suspect]

REACTIONS (3)
  - CARDIAC DISORDER [None]
  - LUNG DISORDER [None]
  - RENAL DISORDER [None]
